FAERS Safety Report 20531633 (Version 4)
Quarter: 2022Q1

REPORT INFORMATION
  Report Type: Spontaneous
  Country: ES (occurrence: ES)
  Receive Date: 20220301
  Receipt Date: 20220324
  Transmission Date: 20220423
  Serious: Yes (Other)
  Sender: FDA-Public Use
  Company Number: ES-ASTELLAS-2022US007208

PATIENT
  Age: 24 Year
  Sex: Female

DRUGS (15)
  1. AMPHOTERICIN B [Suspect]
     Active Substance: AMPHOTERICIN B
     Indication: Systemic mycosis
     Dosage: 400 MG, ONCE DAILY (QD)
     Route: 042
  2. AMPHOTERICIN B [Suspect]
     Active Substance: AMPHOTERICIN B
     Dosage: 5 MG/KG, ONCE DAILY (5 MG/KG, QD FOR 6 MONTHS IN HOSPITAL)
     Route: 042
  3. AMPHOTERICIN B [Suspect]
     Active Substance: AMPHOTERICIN B
     Dosage: 5 MG/KG, ONCE DAILY (5 MG/KG 3 DAYS A WEEK FOR 8 WEEKS)
     Route: 042
  4. AMPHOTERICIN B [Suspect]
     Active Substance: AMPHOTERICIN B
     Dosage: 4 MG/KG, ONCE DAILY (4 MG/KG 3 DAYS A WEEK FOR 4 WEEKS)
     Route: 042
  5. AMPHOTERICIN B [Suspect]
     Active Substance: AMPHOTERICIN B
     Dosage: 3 MG/KG, ONCE DAILY (3 MG/KG 3 DAYS A WEEK FOR 4 WEEKS)
     Route: 042
  6. AMPHOTERICIN B [Suspect]
     Active Substance: AMPHOTERICIN B
     Dosage: 2 MG/KG, ONCE DAILY (2 MG/KG 3 DAYS A WEEK FOR 4 WEEK)
     Route: 042
  7. AMPHOTERICIN B [Suspect]
     Active Substance: AMPHOTERICIN B
     Dosage: 2 MG/KG, ONCE DAILY (2 MG/KG 2 DAYS A WEEK FOR 6 WEEKS)
     Route: 042
  8. ISAVUCONAZOLE [Concomitant]
     Active Substance: ISAVUCONAZOLE
     Indication: Product used for unknown indication
     Dosage: UNK UNK, UNKNOWN FREQ.
     Route: 065
  9. LINEZOLID [Concomitant]
     Active Substance: LINEZOLID
     Indication: Product used for unknown indication
     Dosage: UNK UNK, UNKNOWN FREQ.
     Route: 065
  10. RIMSTAR [Concomitant]
     Active Substance: ETHAMBUTOL\ISONIAZID\PYRAZINAMIDE\RIFAMYCIN
     Indication: Product used for unknown indication
     Dosage: UNK UNK, UNKNOWN FREQ.
     Route: 065
  11. ANIDULAFUNGIN [Concomitant]
     Active Substance: ANIDULAFUNGIN
     Indication: Product used for unknown indication
     Dosage: UNK UNK, UNKNOWN FREQ.
     Route: 065
  12. CEFTRIAXONE [Concomitant]
     Active Substance: CEFTRIAXONE
     Indication: Product used for unknown indication
     Dosage: UNK UNK, UNKNOWN FREQ.
     Route: 065
  13. FLUCITOSINA [Concomitant]
     Indication: Product used for unknown indication
     Dosage: UNK UNK, UNKNOWN FREQ.
     Route: 065
  14. VORICONAZOLE [Concomitant]
     Active Substance: VORICONAZOLE
     Indication: Product used for unknown indication
     Dosage: UNK UNK, UNKNOWN FREQ.
     Route: 065
  15. TERBINAFINE [Concomitant]
     Active Substance: TERBINAFINE
     Indication: Product used for unknown indication
     Dosage: UNK UNK, UNKNOWN FREQ.
     Route: 065

REACTIONS (17)
  - Spinal operation [Unknown]
  - Central nervous system lesion [Unknown]
  - Interferon gamma receptor deficiency [Unknown]
  - Pneumonia [Unknown]
  - Pneumonia cytomegaloviral [Unknown]
  - Cardiac tamponade [Unknown]
  - Bacteraemia [Unknown]
  - Pancreatitis acute [Unknown]
  - Device related sepsis [Unknown]
  - Endotracheal intubation [Unknown]
  - Tracheobronchitis [Unknown]
  - Ill-defined disorder [Unknown]
  - Degenerative bone disease [Unknown]
  - Hypokalaemia [Unknown]
  - Surgery [Unknown]
  - Maternal exposure during delivery [Unknown]
  - Off label use [Unknown]

NARRATIVE: CASE EVENT DATE: 20200519
